FAERS Safety Report 25752270 (Version 1)
Quarter: 2025Q3

REPORT INFORMATION
  Report Type: Spontaneous
  Country: CA (occurrence: CA)
  Receive Date: 20250902
  Receipt Date: 20250902
  Transmission Date: 20251020
  Serious: Yes (Life-Threatening)
  Sender: DR REDDYS
  Company Number: None

PATIENT
  Age: 62 Year
  Sex: Female
  Weight: 111 kg

DRUGS (44)
  1. PEMETREXED DISODIUM HEMIPENTAHYDRATE [Suspect]
     Active Substance: PEMETREXED DISODIUM HEMIPENTAHYDRATE
     Indication: Non-small cell lung cancer metastatic
     Route: 042
  2. PEMETREXED DISODIUM HEMIPENTAHYDRATE [Suspect]
     Active Substance: PEMETREXED DISODIUM HEMIPENTAHYDRATE
     Route: 042
  3. PEMBROLIZUMAB [Suspect]
     Active Substance: PEMBROLIZUMAB
     Indication: Non-small cell lung cancer metastatic
     Route: 042
  4. CARBOPLATIN [Suspect]
     Active Substance: CARBOPLATIN
     Indication: Non-small cell lung cancer metastatic
     Route: 042
  5. ACETAMINOPHEN [Concomitant]
     Active Substance: ACETAMINOPHEN
     Indication: Febrile neutropenia
     Dosage: EXTRA STRENGTH
  6. ASPIRIN [Concomitant]
     Active Substance: ASPIRIN
     Indication: Thrombocytopenia
  7. ASPIRIN [Concomitant]
     Active Substance: ASPIRIN
  8. ACYCLOVIR SODIUM [Concomitant]
     Active Substance: ACYCLOVIR SODIUM
     Indication: Mucosal inflammation
  9. ACYCLOVIR SODIUM [Concomitant]
     Active Substance: ACYCLOVIR SODIUM
  10. ACYCLOVIR SODIUM [Concomitant]
     Active Substance: ACYCLOVIR SODIUM
  11. APREPITANT [Concomitant]
     Active Substance: APREPITANT
     Indication: Nausea
  12. APREPITANT [Concomitant]
     Active Substance: APREPITANT
  13. CEFTRIAXONE [Concomitant]
     Active Substance: CEFTRIAXONE
     Indication: Neutropenia
  14. DALTEPARINA [Concomitant]
     Indication: Thrombosis prophylaxis
  15. DEXAMETHASONE [Concomitant]
     Active Substance: DEXAMETHASONE
     Indication: Nausea
  16. DEXILANT [Concomitant]
     Active Substance: DEXLANSOPRAZOLE
     Indication: Gastrooesophageal reflux disease
  17. DIMETHICONE [Concomitant]
     Active Substance: DIMETHICONE
     Indication: Anaemia
  18. DIMETHICONE [Concomitant]
     Active Substance: DIMETHICONE
  19. DIMETHICONE [Concomitant]
     Active Substance: DIMETHICONE
  20. FESOTERODINE FUMARATE [Concomitant]
     Active Substance: FESOTERODINE FUMARATE
     Indication: Hypertonic bladder
  21. METRONIDAZOLE BENZOATE [Concomitant]
     Active Substance: METRONIDAZOLE BENZOATE
     Indication: Neutropenia
  22. FOLIC ACID [Concomitant]
     Active Substance: FOLIC ACID
     Indication: Premedication
  23. GANCICLOVIR [Concomitant]
     Active Substance: GANCICLOVIR
     Indication: Large intestine infection
  24. FILGRASTIM [Concomitant]
     Active Substance: FILGRASTIM
     Indication: Neutropenia
  25. HYDROMORPHONE [Concomitant]
     Active Substance: HYDROMORPHONE
     Indication: Back pain
  26. HYDROMORPHONE [Concomitant]
     Active Substance: HYDROMORPHONE
  27. HYDROMORPHONE [Concomitant]
     Active Substance: HYDROMORPHONE
  28. LANTUS [Concomitant]
     Active Substance: INSULIN GLARGINE
     Indication: Hyperglycaemia
  29. LIDOCAINE HYDROCHLORIDE [Concomitant]
     Active Substance: LIDOCAINE HYDROCHLORIDE
     Indication: Odynophagia
  30. MAGNESIUM SULFATE [Concomitant]
     Active Substance: MAGNESIUM SULFATE
     Indication: Supplementation therapy
  31. METHYLPREDNISOLONE ACETATE [Concomitant]
     Active Substance: METHYLPREDNISOLONE ACETATE
     Indication: Diarrhoea
  32. METHYLPREDNISOLONE ACETATE [Concomitant]
     Active Substance: METHYLPREDNISOLONE ACETATE
  33. METHYLPREDNISOLONE ACETATE [Concomitant]
     Active Substance: METHYLPREDNISOLONE ACETATE
  34. METOPROLOL FUMARATE [Concomitant]
     Active Substance: METOPROLOL FUMARATE
     Indication: Sinus tachycardia
  35. OLANZAPINE [Concomitant]
     Active Substance: OLANZAPINE
     Indication: Nausea
  36. ONDANSETRON [Concomitant]
     Active Substance: ONDANSETRON
     Indication: Nausea
  37. PANTOPRAZOLE SODIUM [Concomitant]
     Active Substance: PANTOPRAZOLE SODIUM
     Indication: Gastrointestinal disorder
  38. PREGABALIN [Concomitant]
     Active Substance: PREGABALIN
     Indication: Diabetic neuropathy
     Route: 042
  39. SEMAGLUTIDE [Concomitant]
     Active Substance: SEMAGLUTIDE
     Indication: Type 2 diabetes mellitus
     Dosage: SOLUTION SUBCUTANEOUS
  40. AZITHROMYCIN [Concomitant]
     Active Substance: AZITHROMYCIN
     Indication: Febrile neutropenia
  41. TRANEXAMIC ACID [Concomitant]
     Active Substance: TRANEXAMIC ACID
     Indication: Blood test
  42. TRANEXAMIC ACID [Concomitant]
     Active Substance: TRANEXAMIC ACID
  43. ALBUTEROL SULFATE [Concomitant]
     Active Substance: ALBUTEROL SULFATE
     Indication: Dyspnoea
  44. XARELTO [Concomitant]
     Active Substance: RIVAROXABAN
     Indication: Pulmonary embolism

REACTIONS (1)
  - Mouth haemorrhage [Not Recovered/Not Resolved]
